FAERS Safety Report 5514809-4 (Version None)
Quarter: 2007Q4

REPORT INFORMATION
  Report Type: 
  Country: None (occurrence: None)
  Receive Date: 20071109
  Receipt Date: 20071025
  Transmission Date: 20080405
  Serious: Yes (Other)
  Sender: FDA-Public Use
  Company Number: US-1164204

PATIENT
  Age: 80 Year
  Sex: Male
  Weight: 66.2252 kg

DRUGS (1)
  1. NAPHCON-A [Suspect]
     Indication: EYE ALLERGY
     Dosage: (OPHTHALMIC)
     Route: 047
     Dates: start: 20070903, end: 20070903

REACTIONS (5)
  - APPLICATION SITE IRRITATION [None]
  - CORNEAL ABRASION [None]
  - EYE DISORDER [None]
  - EYE IRRITATION [None]
  - EYE SWELLING [None]
